FAERS Safety Report 6040986-5 (Version None)
Quarter: 2009Q1

REPORT INFORMATION
  Report Type: 
  Country: None (occurrence: None)
  Receive Date: 20090116
  Receipt Date: 20080717
  Transmission Date: 20090719
  Serious: No
  Sender: FDA-Public Use
  Company Number: US-BRISTOL-MYERS SQUIBB COMPANY-14267017

PATIENT
  Age: 48 Year
  Sex: Female

DRUGS (4)
  1. ABILIFY [Suspect]
     Dosage: INITIATED WITH 20MG AND INCREASED TO 30MG.
  2. DEPAKOTE [Concomitant]
  3. CLONIDINE [Concomitant]
  4. LORAZEPAM [Concomitant]

REACTIONS (1)
  - BLOOD CREATINE PHOSPHOKINASE INCREASED [None]
